FAERS Safety Report 5412216-6 (Version None)
Quarter: 2007Q3

REPORT INFORMATION
  Report Type: 
  Country: None (occurrence: None)
  Receive Date: 20070810
  Receipt Date: 20070810
  Transmission Date: 20080115
  Serious: Yes (Hospitalization)
  Sender: FDA-Public Use
  Company Number: None

PATIENT
  Age: 73 Year
  Sex: Male
  Weight: 81.8 kg

DRUGS (3)
  1. LISINOPRIL [Suspect]
     Indication: CARDIAC FAILURE CHRONIC
     Dosage: 5MG EVERY DAY PO
     Route: 048
     Dates: start: 20061121, end: 20070718
  2. LISINOPRIL [Suspect]
     Indication: CORONARY ARTERY DISEASE
     Dosage: 5MG EVERY DAY PO
     Route: 048
     Dates: start: 20061121, end: 20070718
  3. LISINOPRIL [Suspect]
     Indication: RENAL DISORDER
     Dosage: 5MG EVERY DAY PO
     Route: 048
     Dates: start: 20061121, end: 20070718

REACTIONS (4)
  - BLOOD POTASSIUM INCREASED [None]
  - ELECTROCARDIOGRAM CHANGE [None]
  - HYPERKALAEMIA [None]
  - MYOCARDIAL ISCHAEMIA [None]
